FAERS Safety Report 4978288-8 (Version None)
Quarter: 2006Q2

REPORT INFORMATION
  Report Type: 
  Country: None (occurrence: None)
  Receive Date: 20060417
  Receipt Date: 20060405
  Transmission Date: 20061013
  Serious: Yes (Death, Hospitalization)
  Sender: FDA-Public Use
  Company Number: MC200600256

PATIENT
  Age: 56 Year
  Sex: Male
  Weight: 65.5 kg

DRUGS (2)
  1. ANGIOMAX [Suspect]
     Dosage: SEE IMAGE
     Dates: start: 20060405, end: 20060405
  2. INTEGRILIN [Concomitant]

REACTIONS (2)
  - PNEUMONIA [None]
  - POST PROCEDURAL COMPLICATION [None]
